FAERS Safety Report 8447104-4 (Version None)
Quarter: 2012Q2

REPORT INFORMATION
  Report Type: 
  Country: None (occurrence: None)
  Receive Date: 20120619
  Receipt Date: 20110923
  Transmission Date: 20120825
  Serious: No
  Sender: FDA-Public Use
  Company Number: US-PFIZER INC-K201101127

PATIENT
  Sex: Female

DRUGS (3)
  1. LEVOXYL [Suspect]
     Dosage: 100 UG, 1X/DAY
     Route: 048
     Dates: start: 20110101
  2. LEVOXYL [Suspect]
     Indication: THYROID DISORDER
     Dosage: 100 UG, 1X/DAY
     Route: 048
     Dates: start: 19960101, end: 20090101
  3. LEVOXYL [Suspect]
     Dosage: 1 AND THREE FOURTS TABLET DAILY
     Route: 048
     Dates: start: 20090101, end: 20110101

REACTIONS (5)
  - MADAROSIS [None]
  - DRUG INEFFECTIVE [None]
  - HEART RATE IRREGULAR [None]
  - HYPOTHYROIDISM [None]
  - FATIGUE [None]
